FAERS Safety Report 12258311 (Version 1)
Quarter: 2016Q2

REPORT INFORMATION
  Report Type: Spontaneous
  Country: DE (occurrence: DE)
  Receive Date: 20160412
  Receipt Date: 20160412
  Transmission Date: 20160815
  Serious: Yes (Hospitalization)
  Sender: FDA-Public Use
  Company Number: DE-ABBVIE-16K-062-1565683-00

PATIENT
  Age: 17 Year
  Sex: Male
  Weight: 113 kg

DRUGS (3)
  1. OMEPRAZOLE. [Concomitant]
     Active Substance: OMEPRAZOLE
     Indication: PRODUCT USED FOR UNKNOWN INDICATION
     Route: 048
  2. ALLOPURINOL. [Concomitant]
     Active Substance: ALLOPURINOL
     Indication: PRODUCT USED FOR UNKNOWN INDICATION
     Route: 048
     Dates: start: 201011
  3. HUMIRA [Suspect]
     Active Substance: ADALIMUMAB
     Indication: JUVENILE IDIOPATHIC ARTHRITIS
     Route: 058
     Dates: start: 201404, end: 201602

REACTIONS (8)
  - Hepatomegaly [Unknown]
  - Abscess limb [Unknown]
  - Abscess limb [Unknown]
  - Staphylococcal infection [Not Recovered/Not Resolved]
  - Cellulitis [Recovering/Resolving]
  - Chronic recurrent multifocal osteomyelitis [Unknown]
  - Skin infection [Not Recovered/Not Resolved]
  - Superinfection bacterial [Recovering/Resolving]

NARRATIVE: CASE EVENT DATE: 201512
